FAERS Safety Report 8225775-5 (Version None)
Quarter: 2012Q1

REPORT INFORMATION
  Report Type: 
  Country: None (occurrence: None)
  Receive Date: 20120321
  Receipt Date: 20120313
  Transmission Date: 20120608
  Serious: Yes (Hospitalization, Other)
  Sender: FDA-Public Use
  Company Number: US-ELI_LILLY_AND_COMPANY-US201203004400

PATIENT
  Sex: Male
  Weight: 71.7 kg

DRUGS (7)
  1. HUMALOG [Suspect]
     Dosage: 2 U, BID
  2. LANTUS [Concomitant]
     Dosage: 14 U, EACH EVENING
  3. HUMALOG [Suspect]
     Indication: DIABETES MELLITUS
     Dosage: 2 U, BID
  4. INSULIN [Concomitant]
  5. GLIPIZIDE [Concomitant]
     Dosage: 10 MG, QD
  6. HUMALOG [Suspect]
     Dosage: 8 U, EACH EVENING
  7. HUMALOG [Suspect]
     Dosage: 8 U, EACH EVENING

REACTIONS (4)
  - BLOOD GLUCOSE INCREASED [None]
  - EYE HAEMORRHAGE [None]
  - BLINDNESS UNILATERAL [None]
  - EYE OPERATION [None]
